FAERS Safety Report 8294157-2 (Version None)
Quarter: 2012Q2

REPORT INFORMATION
  Report Type: 
  Country: None (occurrence: None)
  Receive Date: 20120418
  Receipt Date: 20120412
  Transmission Date: 20120825
  Serious: Yes (Hospitalization)
  Sender: FDA-Public Use
  Company Number: PHHY2012DE031350

PATIENT
  Sex: Female

DRUGS (2)
  1. DIOVAN [Suspect]
     Dosage: 80 MG,
  2. DIOVAN [Suspect]
     Dosage: 80 MG,

REACTIONS (1)
  - ACCIDENTAL DRUG INTAKE BY CHILD [None]
